FAERS Safety Report 6824078-0 (Version None)
Quarter: 2010Q3

REPORT INFORMATION
  Report Type: 
  Country: None (occurrence: None)
  Receive Date: 20100708
  Receipt Date: 20061003
  Transmission Date: 20110219
  Serious: No
  Sender: FDA-Public Use
  Company Number: US-PFIZER INC-2006122086

PATIENT
  Sex: Male
  Weight: 65.77 kg

DRUGS (5)
  1. CHANTIX [Suspect]
     Indication: SMOKING CESSATION THERAPY
     Dates: start: 20060820
  2. COMBIVENT [Concomitant]
  3. FLOVENT [Concomitant]
  4. PULMICORT [Concomitant]
  5. XOPENEX [Concomitant]

REACTIONS (4)
  - DRUG WITHDRAWAL SYNDROME [None]
  - NAUSEA [None]
  - TREMOR [None]
  - WEIGHT INCREASED [None]
